FAERS Safety Report 23366821 (Version 1)
Quarter: 2024Q1

REPORT INFORMATION
  Report Type: Spontaneous
  Country: FR (occurrence: FR)
  Receive Date: 20240104
  Receipt Date: 20240104
  Transmission Date: 20240409
  Serious: Yes (Death)
  Sender: FDA-Public Use
  Company Number: None

PATIENT
  Age: 74 Year
  Sex: Female
  Weight: 76 kg

DRUGS (2)
  1. CYTARABINE [Suspect]
     Active Substance: CYTARABINE
     Indication: Myeloid leukaemia
     Dosage: 360 MG
     Route: 042
     Dates: start: 20231006, end: 20231012
  2. DAUNORUBICIN [Suspect]
     Active Substance: DAUNORUBICIN
     Indication: Myeloid leukaemia
     Dosage: 82 MG
     Dates: start: 20231006, end: 20231009

REACTIONS (2)
  - Febrile bone marrow aplasia [Fatal]
  - Colitis [Fatal]

NARRATIVE: CASE EVENT DATE: 20231007
